FAERS Safety Report 5258902-2 (Version None)
Quarter: 2007Q1

REPORT INFORMATION
  Report Type: 
  Country: None (occurrence: None)
  Receive Date: 20061117
  Receipt Date: 20060131
  Transmission Date: 20070707
  Serious: Yes (Other)
  Sender: FDA-Public Use
  Company Number: US-JNJFOC-20060103583

PATIENT
  Age: 79 Year
  Sex: Male

DRUGS (2)
  1. LEVAQUIN [Suspect]
     Indication: PNEUMONIA
     Dosage: 500 MG, 1 IN 1 DAY
     Dates: start: 20051229
  2. COUMADIN [Concomitant]

REACTIONS (2)
  - TENDON DISORDER [None]
  - TENDON RUPTURE [None]
